FAERS Safety Report 7469807 (Version 5)
Quarter: 2012Q4

REPORT INFORMATION
  Report Type: 
  Country: US (occurrence: US)
  Receive Date: 20100713
  Receipt Date: 20121119
  Transmission Date: 20130627
  Serious: Yes (Hospitalization)
  Sender: FDA-Public Use
  Company Number: US-BAYER-201027372NA

PATIENT
  Age: 21 Year
  Sex: Female
  Weight: 58.96 kg

DRUGS (20)
  1. YAZ [Suspect]
     Indication: CONTRACEPTION
     Dosage: UNK UNK, QD
     Route: 048
     Dates: start: 20071105, end: 20090804
  2. FLUCONAZOLE [Concomitant]
     Dosage: 150 mg, UNK
  3. BORIC ACID [Concomitant]
     Dosage: 600 mg, UNK
  4. LEVOTHYROXINE [Concomitant]
     Dosage: 100 mcg/24hr, UNK
  5. DIOVAN HCT [Concomitant]
     Dosage: 160 mg, UNK
  6. AMOXICILLIN [Concomitant]
     Dosage: 875 mg, UNK
  7. BENZONATATE [Concomitant]
     Dosage: 100 mg, UNK
  8. CELEBREX [Concomitant]
     Dosage: 200 mg, UNK
  9. METFORMIN [Concomitant]
     Dosage: 1000 mg, UNK
  10. FUROSEMIDE [FUROSEMIDE] [Concomitant]
     Dosage: 20 mg, UNK
  11. POTASSIUM [POTASSIUM] [Concomitant]
     Dosage: 20 mEq, UNK
  12. MEPERIDINE [Concomitant]
     Dosage: 50 mg, Q4HR
     Route: 048
  13. PROMETHAZINE [Concomitant]
     Dosage: 25 mg, UNK
     Route: 048
  14. FLEXERIL [Concomitant]
     Dosage: 5 mg, TID
     Route: 048
  15. TYLENOL [Concomitant]
     Dosage: UNK
     Dates: end: 20090724
  16. TYLENOL [Concomitant]
     Indication: FEVER
     Dosage: UNK
     Route: 048
     Dates: start: 200907
  17. BROMFED [Concomitant]
     Dosage: UNK
     Dates: start: 20090714
  18. CEFDINIR [Concomitant]
     Dosage: UNK
     Dates: start: 20090714
  19. DURAHIST [Concomitant]
     Dosage: UNK
     Dates: start: 20090714
  20. CIPROFLOXACIN [Concomitant]
     Indication: UTI
     Dosage: 500 mg, BID,one tab q 12 hrs
     Route: 048
     Dates: start: 20090729

REACTIONS (8)
  - Pulmonary embolism [None]
  - Anxiety [None]
  - Anhedonia [None]
  - Fear [None]
  - Injury [None]
  - Pleuritic pain [None]
  - Dyspnoea [None]
  - Pain [None]
